FAERS Safety Report 8615694 (Version 2)
Quarter: 2012Q4

REPORT INFORMATION
  Report Type: 
  Country: US (occurrence: US)
  Receive Date: 20120614
  Receipt Date: 20120927
  Transmission Date: 20130627
  Serious: No
  Sender: FDA-Public Use
  Company Number: US-AMGEN-USASP2012026786

PATIENT
  Age: 94 Year
  Sex: Female

DRUGS (7)
  1. PROLIA [Suspect]
     Indication: OSTEOPOROSIS POSTMENOPAUSAL
     Dosage: 60 mg, q6mo
     Dates: start: 20120411
  2. ATENOLOL [Concomitant]
     Dosage: UNK
  3. BABY ASPIRIN [Concomitant]
     Dosage: UNK
  4. VITAMIN D [Concomitant]
     Dosage: UNK
  5. CALCIUM [Concomitant]
     Dosage: UNK
  6. OXCARBAZEPINE [Concomitant]
     Dosage: UNK
  7. AMLODIPINE [Concomitant]
     Dosage: UNK

REACTIONS (4)
  - Dry skin [Not Recovered/Not Resolved]
  - Burning sensation [Not Recovered/Not Resolved]
  - Pruritus [Not Recovered/Not Resolved]
  - Swelling face [Not Recovered/Not Resolved]
